FAERS Safety Report 5097463-8 (Version None)
Quarter: 2006Q3

REPORT INFORMATION
  Report Type: 
  Country: None (occurrence: None)
  Receive Date: 20060901
  Receipt Date: 20060814
  Transmission Date: 20061208
  Serious: Yes (Hospitalization)
  Sender: FDA-Public Use
  Company Number: US200603000519

PATIENT
  Age: 46 Year
  Sex: Female
  Weight: 95.2 kg

DRUGS (3)
  1. ZYPREXA [Suspect]
     Dosage: 15 MG; 20 MG
     Dates: end: 20030101
  2. ZYPREXA [Suspect]
     Dosage: 15 MG; 20 MG
     Dates: start: 20020101
  3. QUETIAPINE FUMARATE [Concomitant]

REACTIONS (3)
  - CONDITION AGGRAVATED [None]
  - DIABETES MELLITUS [None]
  - PERIPHERAL VASCULAR DISORDER [None]
